FAERS Safety Report 21097511 (Version 1)
Quarter: 2022Q3

REPORT INFORMATION
  Report Type: Other
  Country: US (occurrence: None)
  Receive Date: 20220719
  Receipt Date: 20220719
  Transmission Date: 20221027
  Serious: Yes (Hospitalization, Other)
  Sender: FDA-Public Use
  Company Number: US-ROCHE-2043948

PATIENT
  Sex: Female

DRUGS (10)
  1. CELLCEPT [Suspect]
     Active Substance: MYCOPHENOLATE MOFETIL
     Indication: Dermatomyositis
     Dosage: ONGOING: UNKNOWN , 500MG TABLET
     Route: 048
  2. CELLCEPT [Suspect]
     Active Substance: MYCOPHENOLATE MOFETIL
     Dosage: 500MG 2 TABLETS BID
     Route: 048
  3. VALTREX [Concomitant]
     Active Substance: VALACYCLOVIR HYDROCHLORIDE
     Dates: start: 20171218, end: 20171218
  4. DESOWEN [Concomitant]
     Active Substance: DESONIDE
     Route: 061
  5. LIDEX [Concomitant]
     Active Substance: FLUOCINONIDE
     Route: 061
     Dates: start: 20171218, end: 20171218
  6. PERCOCET [Concomitant]
     Active Substance: ACETAMINOPHEN\OXYCODONE HYDROCHLORIDE
     Dosage: FORM STRENGHT: 7.5-325 MG
     Route: 048
  7. VALACYCLOVIR [Concomitant]
     Active Substance: VALACYCLOVIR HYDROCHLORIDE
     Dates: start: 20171218, end: 20171218
  8. DESONIDE [Concomitant]
     Active Substance: DESONIDE
  9. FLUOCINONIDE [Concomitant]
     Active Substance: FLUOCINONIDE
  10. OXYCODONE [Concomitant]
     Active Substance: OXYCODONE

REACTIONS (12)
  - Breast cancer [Unknown]
  - Muscular weakness [Unknown]
  - Wound infection [Not Recovered/Not Resolved]
  - Malaise [Not Recovered/Not Resolved]
  - Oedema peripheral [Unknown]
  - Pain [Not Recovered/Not Resolved]
  - Discomfort [Not Recovered/Not Resolved]
  - Neoplasm [Unknown]
  - Melanocytic naevus [Unknown]
  - Alopecia [Not Recovered/Not Resolved]
  - Lip erosion [Not Recovered/Not Resolved]
  - Off label use [Unknown]
